FAERS Safety Report 8024569-3 (Version None)
Quarter: 2012Q1

REPORT INFORMATION
  Report Type: 
  Country: None (occurrence: None)
  Receive Date: 20120103
  Receipt Date: 20111221
  Transmission Date: 20120608
  Serious: Yes (Other)
  Sender: FDA-Public Use
  Company Number: AUR-APL-2011-06317

PATIENT
  Sex: Male

DRUGS (1)
  1. TERBINAFINE HCL [Suspect]
     Indication: ONYCHOMYCOSIS
     Dosage: (1 IN 1 D), ORAL
     Route: 048
     Dates: start: 20110101, end: 20110101

REACTIONS (4)
  - AGEUSIA [None]
  - VITREOUS DISORDER [None]
  - LACRIMATION DECREASED [None]
  - VISUAL IMPAIRMENT [None]
